FAERS Safety Report 25830856 (Version 1)
Quarter: 2025Q3

REPORT INFORMATION
  Report Type: Spontaneous
  Country: US (occurrence: None)
  Receive Date: 20250920
  Receipt Date: 20250920
  Transmission Date: 20251020
  Serious: Yes (unspecified)
  Sender: FDA-CTU
  Company Number: None

PATIENT
  Age: 68 Year
  Sex: Female
  Weight: 78.75 kg

DRUGS (7)
  1. CELECOXIB [Suspect]
     Active Substance: CELECOXIB
     Indication: Osteoarthritis
     Dosage: OTHER QUANTITY : 1 TABLET(S);?FREQUENCY : DAILY;?
     Route: 048
     Dates: start: 20240917, end: 20250323
  2. LOSARTAN [Concomitant]
     Active Substance: LOSARTAN
  3. EZETIMIBE [Concomitant]
     Active Substance: EZETIMIBE
  4. Amolodopine 5mg [Concomitant]
  5. memythimizole 7.5 mg [Concomitant]
  6. CALCIUM [Concomitant]
     Active Substance: CALCIUM
  7. VITAMIN D3 [Concomitant]
     Active Substance: CHOLECALCIFEROL

REACTIONS (1)
  - Cheilitis [None]

NARRATIVE: CASE EVENT DATE: 20240921
